FAERS Safety Report 12586871 (Version 2)
Quarter: 2016Q3

REPORT INFORMATION
  Report Type: Report from Study
  Country: US (occurrence: US)
  Receive Date: 20160725
  Receipt Date: 20160922
  Transmission Date: 20161109
  Serious: Yes (Other)
  Sender: FDA-Public Use
  Company Number: US-JNJFOC-20160715766

PATIENT
  Age: 73 Year
  Sex: Female

DRUGS (10)
  1. ATORVASTATIN [Concomitant]
     Active Substance: ATORVASTATIN
  2. BENAZEPRIL [Concomitant]
     Active Substance: BENAZEPRIL HYDROCHLORIDE
  3. CALCIUM CARBONATE W/COLECALCIFEROL [Concomitant]
     Active Substance: CALCIUM CARBONATE\CHOLECALCIFEROL
  4. XARELTO [Concomitant]
     Active Substance: RIVAROXABAN
  5. METOPROLOL. [Concomitant]
     Active Substance: METOPROLOL
  6. LIPITOR [Concomitant]
     Active Substance: ATORVASTATIN CALCIUM
  7. MECLIZINE [Concomitant]
     Active Substance: MECLIZINE HYDROCHLORIDE
  8. IMBRUVICA [Suspect]
     Active Substance: IBRUTINIB
     Indication: CHRONIC LYMPHOCYTIC LEUKAEMIA
     Route: 065
     Dates: start: 20140604, end: 201606
  9. OMEPRAZOLE. [Concomitant]
     Active Substance: OMEPRAZOLE
  10. IMBRUVICA [Suspect]
     Active Substance: IBRUTINIB
     Indication: CHRONIC LYMPHOCYTIC LEUKAEMIA
     Route: 065
     Dates: start: 201606

REACTIONS (4)
  - Basal cell carcinoma [Recovered/Resolved]
  - Lymphadenopathy [Unknown]
  - Gastrooesophageal reflux disease [Unknown]
  - Hiatus hernia [Recovering/Resolving]

NARRATIVE: CASE EVENT DATE: 201601
